FAERS Safety Report 12898262 (Version 1)
Quarter: 2016Q4

REPORT INFORMATION
  Report Type: Spontaneous
  Country: US (occurrence: US)
  Receive Date: 20161031
  Receipt Date: 20161031
  Transmission Date: 20170207
  Serious: Yes (Hospitalization, Other)
  Sender: FDA-Public Use
  Company Number: US-009507513-1012USA01314

PATIENT
  Sex: Female
  Weight: 65.76 kg

DRUGS (4)
  1. FOSAMAX [Suspect]
     Active Substance: ALENDRONATE SODIUM
     Indication: OSTEOPOROSIS
     Dosage: 70 MG, UNKNOWN
     Route: 048
     Dates: start: 199909, end: 201006
  2. ALENDRONATE SODIUM. [Suspect]
     Active Substance: ALENDRONATE SODIUM
     Indication: OSTEOPOROSIS
     Dosage: 70 MG, UNKNOWN
     Route: 048
     Dates: start: 20080616, end: 20090504
  3. FOSAMAX [Suspect]
     Active Substance: ALENDRONATE SODIUM
     Indication: OSTEOPOROSIS
     Dosage: 70 MG, UNKNOWN
     Route: 048
     Dates: start: 20080425
  4. FOSAMAX PLUS D [Suspect]
     Active Substance: ALENDRONATE SODIUM\CHOLECALCIFEROL
     Indication: OSTEOPOROSIS
     Dosage: 70MG//2800IU, UNKNOWN
     Route: 048
     Dates: start: 199909, end: 200911

REACTIONS (44)
  - Gait disturbance [Unknown]
  - Muscle strain [Unknown]
  - Fall [Unknown]
  - Adverse event [Unknown]
  - Dyspnoea [Unknown]
  - Musculoskeletal chest pain [Unknown]
  - Otitis media [Unknown]
  - Osteoarthritis [Unknown]
  - Intervertebral disc disorder [Unknown]
  - Genital herpes [Unknown]
  - Post herpetic neuralgia [Unknown]
  - Herpes zoster [Recovering/Resolving]
  - Weight increased [Unknown]
  - Sciatica [Not Recovered/Not Resolved]
  - Muscle spasms [Not Recovered/Not Resolved]
  - Menopause [Unknown]
  - Femur fracture [Unknown]
  - Upper respiratory tract infection [Unknown]
  - Gastrooesophageal reflux disease [Unknown]
  - Dental fistula [Not Recovered/Not Resolved]
  - Intervertebral disc protrusion [Unknown]
  - Femur fracture [Unknown]
  - Anxiety [Unknown]
  - Oral disorder [Unknown]
  - Sinusitis [Not Recovered/Not Resolved]
  - Upper respiratory tract infection [Unknown]
  - Back pain [Not Recovered/Not Resolved]
  - Cerebrovascular accident [Unknown]
  - Atrophic vulvovaginitis [Unknown]
  - Intervertebral disc annular tear [Unknown]
  - Hypertension [Not Recovered/Not Resolved]
  - Rhinitis allergic [Not Recovered/Not Resolved]
  - Limb asymmetry [Unknown]
  - Scoliosis [Unknown]
  - Neck pain [Not Recovered/Not Resolved]
  - Insomnia [Unknown]
  - Femur fracture [Unknown]
  - Osteonecrosis of jaw [Unknown]
  - Sinus disorder [Unknown]
  - Low turnover osteopathy [Unknown]
  - Depression [Not Recovered/Not Resolved]
  - Onychomycosis [Unknown]
  - Constipation [Unknown]
  - Stress fracture [Unknown]

NARRATIVE: CASE EVENT DATE: 1999
